FAERS Safety Report 8636744 (Version 4)
Quarter: 2012Q4

REPORT INFORMATION
  Report Type: 
  Country: JP (occurrence: JP)
  Receive Date: 20120612
  Receipt Date: 20120928
  Transmission Date: 20130627
  Serious: Yes (Life-Threatening)
  Sender: FDA-Public Use
  Company Number: JP-009507513-2012SP030710

PATIENT
  Age: 67 Year
  Sex: Male
  Weight: 71 kg

DRUGS (3)
  1. ESLAX INTRAVENOUS 50MG/5.0ML [Suspect]
     Indication: NEUROMUSCULAR BLOCKING THERAPY
     Dosage: 50 mg, qd
     Route: 042
     Dates: start: 20111124, end: 20111124
  2. DIPRIVAN [Suspect]
     Indication: ANAESTHESIA PROCEDURE
     Dosage: 100 mg, qd
     Route: 042
     Dates: start: 20111124, end: 20111124
  3. ULTIVA [Suspect]
     Indication: ANALGESIC THERAPY
     Dosage: Continous administration (0.5mcg/kg/minute)
     Route: 042
     Dates: start: 20111124, end: 20111124

REACTIONS (4)
  - Laryngeal oedema [Recovered/Resolved with Sequelae]
  - Cardiac arrest [Recovered/Resolved]
  - Pharyngeal oedema [Recovered/Resolved with Sequelae]
  - Respiratory failure [None]
